FAERS Safety Report 15903645 (Version 2)
Quarter: 2019Q1

REPORT INFORMATION
  Report Type: Spontaneous
  Country: US (occurrence: US)
  Receive Date: 20190203
  Receipt Date: 20190218
  Transmission Date: 20190417
  Serious: No
  Sender: FDA-Public Use
  Company Number: US-JNJFOC-20190124361

PATIENT
  Age: 75 Year
  Sex: Male
  Weight: 104.33 kg

DRUGS (14)
  1. NITROGLYCERIN. [Concomitant]
     Active Substance: NITROGLYCERIN
     Indication: CHEST PAIN
     Dosage: DOSE: ^.04^FREQUENCY: AS NEEDED
     Route: 065
  2. ALLOPURINOL. [Concomitant]
     Active Substance: ALLOPURINOL
     Indication: GOUT
     Dosage: DOSE: ^300^FREQUENCY: ^ONCE^
     Route: 048
     Dates: start: 2015
  3. HUMALOG [Concomitant]
     Active Substance: INSULIN LISPRO
     Indication: DIABETES MELLITUS
     Dosage: DOSE: 4-5 MG
     Route: 030
     Dates: start: 2014
  4. OMEPRAZOLE. [Concomitant]
     Active Substance: OMEPRAZOLE
     Indication: GASTROOESOPHAGEAL REFLUX DISEASE
     Dosage: DOSE: ^20^FREQUENCY: ^ONCE^
     Route: 048
     Dates: start: 2007
  5. TREMFYA [Suspect]
     Active Substance: GUSELKUMAB
     Indication: PSORIASIS
     Route: 058
     Dates: start: 20181201
  6. LISINOPRIL. [Concomitant]
     Active Substance: LISINOPRIL
     Indication: CARDIAC DISORDER
     Dosage: DOSE: ^40^??FREQUENCY: ^ONCE^
     Route: 048
     Dates: start: 2012
  7. CARBIDOPA LEVODOPA [Concomitant]
     Active Substance: CARBIDOPA\LEVODOPA
     Indication: PARKINSON^S DISEASE
     Dosage: DOSE: ^50-200^FREQUENCY: ^ONCE^
     Route: 048
     Dates: start: 2018
  8. HUMULIN NOS [Concomitant]
     Active Substance: INSULIN HUMAN
     Indication: DIABETES MELLITUS
     Dosage: DOSE: 14-20MG FREQUENCY: HS
     Route: 030
     Dates: start: 2014
  9. ATENOLOL. [Concomitant]
     Active Substance: ATENOLOL
     Indication: HYPERTENSION
     Dosage: FREQUENCY: ^TWICE^
     Route: 048
     Dates: start: 1987
  10. ATORVASTATIN [Concomitant]
     Active Substance: ATORVASTATIN
     Indication: BLOOD CHOLESTEROL ABNORMAL
     Dosage: DOSE: ^40^??FREQUENCY: ^ONCE^
     Route: 048
     Dates: start: 2012
  11. CLOPIDOGREL [Concomitant]
     Active Substance: CLOPIDOGREL BISULFATE
     Indication: ANTICOAGULANT THERAPY
     Dosage: DOSE: ^75^FREQUENCY: ^ONCE^
     Route: 048
     Dates: start: 2017
  12. RANEXA [Concomitant]
     Active Substance: RANOLAZINE
     Indication: CARDIAC DISORDER
     Dosage: DOSE: ^25^??FREQUENCY: ^ONCE^
     Route: 048
     Dates: start: 201709
  13. CHLORTHALIDONE. [Concomitant]
     Active Substance: CHLORTHALIDONE
     Indication: DIURETIC THERAPY
     Dosage: DOSE: ^25^FREQUENCY: ^ONCE^
     Route: 048
     Dates: start: 2018
  14. ELIQUIS [Concomitant]
     Active Substance: APIXABAN
     Indication: ANTICOAGULANT THERAPY
     Dosage: DOSE: ^5^FREQUENCY: ^TWICE^
     Route: 048
     Dates: start: 2017

REACTIONS (2)
  - Product dose omission [Not Recovered/Not Resolved]
  - Syringe issue [Unknown]

NARRATIVE: CASE EVENT DATE: 20190117
